FAERS Safety Report 11934001 (Version 1)
Quarter: 2016Q1

REPORT INFORMATION
  Report Type: Spontaneous
  Country: US (occurrence: None)
  Receive Date: 20160120
  Receipt Date: 20160120
  Transmission Date: 20160526
  Serious: No
  Sender: FDA-Public Use
  Company Number: None

PATIENT
  Age: 58 Year
  Sex: Female

DRUGS (8)
  1. FROVA [Concomitant]
     Active Substance: FROVATRIPTAN SUCCINATE
  2. SULFAMETHOX [Concomitant]
  3. LETROZOLE 2.5MG SUN PHARMACEUTICALS [Suspect]
     Active Substance: LETROZOLE
     Indication: BREAST CANCER
     Route: 048
     Dates: start: 20150526, end: 201601
  4. CEPHALEXIN. [Concomitant]
     Active Substance: CEPHALEXIN
  5. SELENIUM [Concomitant]
     Active Substance: SELENIUM
  6. IBRANCE [Suspect]
     Active Substance: PALBOCICLIB
     Indication: BREAST CANCER
     Dosage: 125MG, QD FOR 21DS ORAL
     Dates: start: 20150526, end: 201601
  7. CALCIUM [Concomitant]
     Active Substance: CALCIUM
  8. NORTRIPTYLIN [Concomitant]
     Active Substance: NORTRIPTYLINE

REACTIONS (1)
  - Drug ineffective [None]

NARRATIVE: CASE EVENT DATE: 201601
